FAERS Safety Report 10039667 (Version 1)
Quarter: 2014Q1

REPORT INFORMATION
  Report Type: Spontaneous
  Country: US (occurrence: US)
  Receive Date: 20140326
  Receipt Date: 20140326
  Transmission Date: 20141002
  Serious: Yes (Other)
  Sender: FDA-Public Use
  Company Number: US-JNJFOC-20140308648

PATIENT
  Sex: Female

DRUGS (4)
  1. DURAGESIC [Suspect]
     Indication: ENDOMETRIOSIS
     Route: 062
  2. DURAGESIC [Suspect]
     Indication: ENDOMETRIOSIS
     Route: 062
     Dates: end: 2014
  3. PREMARIN [Concomitant]
     Indication: HORMONE REPLACEMENT THERAPY
     Route: 048
     Dates: start: 1992
  4. SYNTHROID [Concomitant]
     Indication: THYROID DISORDER
     Route: 048

REACTIONS (4)
  - Bladder disorder [Recovered/Resolved]
  - Bladder prolapse [Not Recovered/Not Resolved]
  - Pneumonia [Unknown]
  - Pain [Not Recovered/Not Resolved]
